FAERS Safety Report 5628696-7 (Version None)
Quarter: 2008Q1

REPORT INFORMATION
  Report Type: 
  Country: None (occurrence: None)
  Receive Date: 20080215
  Receipt Date: 20080215
  Transmission Date: 20080703
  Serious: Yes (Hospitalization)
  Sender: FDA-Public Use
  Company Number: None

PATIENT
  Age: 85 Year
  Sex: Male

DRUGS (1)
  1. PREDNISONE [Suspect]
     Indication: HYPERSENSITIVITY
     Dosage: ORAL;50.0 MILLIGRAM
     Route: 048
     Dates: start: 20071215, end: 20071220

REACTIONS (11)
  - AGITATION [None]
  - ATRIAL FIBRILLATION [None]
  - CARDIAC FAILURE CHRONIC [None]
  - CONDITION AGGRAVATED [None]
  - DERMATITIS EXFOLIATIVE [None]
  - HALLUCINATION [None]
  - HYPERTENSION [None]
  - MENTAL STATUS CHANGES [None]
  - METABOLIC ACIDOSIS [None]
  - SHARED PSYCHOTIC DISORDER [None]
  - STAPHYLOCOCCAL INFECTION [None]
